FAERS Safety Report 9438820 (Version 1)
Quarter: 2013Q3

REPORT INFORMATION
  Report Type: Spontaneous
  Country: US (occurrence: US)
  Receive Date: 20130802
  Receipt Date: 20130802
  Transmission Date: 20140515
  Serious: No
  Sender: FDA-Public Use
  Company Number: US-009507513-1307USA016996

PATIENT
  Age: 78 Year
  Sex: Male

DRUGS (1)
  1. TICE BCG LIVE [Suspect]
     Indication: BLADDER CANCER
     Dosage: 1 VIAL OF TICE BCG SUSPENDED IN 50 ML SALINE, ADMINISTERED INTRAVESICALLY, ONCE A WEEK FOR 6 WEEKS
     Route: 043
     Dates: start: 20130622

REACTIONS (3)
  - Bursitis [Not Recovered/Not Resolved]
  - Off label use [Unknown]
  - Incorrect route of drug administration [Unknown]
